FAERS Safety Report 19801456 (Version 3)
Quarter: 2022Q2

REPORT INFORMATION
  Report Type: Spontaneous
  Country: GB (occurrence: GB)
  Receive Date: 20210908
  Receipt Date: 20220602
  Transmission Date: 20220720
  Serious: Yes (Other)
  Sender: FDA-Public Use
  Company Number: GB-JNJFOC-20201034744

PATIENT
  Age: 73 Year
  Sex: Male

DRUGS (6)
  1. ABIRATERONE [Suspect]
     Active Substance: ABIRATERONE
     Indication: Prostate cancer
     Route: 048
     Dates: start: 20200814, end: 20210713
  2. ABIRATERONE [Suspect]
     Active Substance: ABIRATERONE
     Route: 048
     Dates: start: 20210928
  3. PREDNISOLONE [Suspect]
     Active Substance: PREDNISOLONE
     Indication: Prostate cancer
     Route: 048
     Dates: start: 20200814, end: 20210713
  4. ATENOLOL [Concomitant]
     Active Substance: ATENOLOL
     Indication: Product used for unknown indication
  5. ATENOLOL [Concomitant]
     Active Substance: ATENOLOL
  6. ATENOLOL [Concomitant]
     Active Substance: ATENOLOL
     Dosage: GP HAS REDUCED THE DOSE OF ATENOLOL TO 10 MG

REACTIONS (3)
  - Lower respiratory tract infection [Recovered/Resolved]
  - Hypertension [Not Recovered/Not Resolved]
  - Pulse abnormal [Recovering/Resolving]

NARRATIVE: CASE EVENT DATE: 20210101
